FAERS Safety Report 7834852-X (Version None)
Quarter: 2011Q4

REPORT INFORMATION
  Report Type: 
  Country: None (occurrence: None)
  Receive Date: 20111024
  Receipt Date: 20111017
  Transmission Date: 20120403
  Serious: Yes (Hospitalization)
  Sender: FDA-Public Use
  Company Number: US-UCBSA-040184

PATIENT
  Age: 13 Year
  Sex: Female
  Weight: 53 kg

DRUGS (7)
  1. CERTOLIZUMAB PEGOL [Suspect]
     Indication: CROHN'S DISEASE
     Dosage: 200 MG; 23-AUG-2010 TO 07-JAN-2011.
     Route: 058
     Dates: start: 20110203, end: 20110801
  2. MULTI-VITAMIN [Concomitant]
     Indication: MEDICAL DIET
     Dosage: DOSE: 1
     Route: 048
     Dates: start: 20090602
  3. ENTOCORT EC [Concomitant]
     Route: 048
     Dates: start: 20100907
  4. MIRALAX [Concomitant]
     Indication: CONSTIPATION
     Route: 048
     Dates: start: 20101105
  5. DESMOPRESSIN [Concomitant]
     Indication: ENURESIS
     Dosage: 4MG ONCE AT BEDTIME
     Route: 048
     Dates: start: 20100913
  6. ENTOCORT EC [Concomitant]
     Indication: CROHN'S DISEASE
     Route: 048
     Dates: start: 20110629
  7. PRILOSEC [Concomitant]
     Indication: GASTROOESOPHAGEAL REFLUX DISEASE
     Route: 048
     Dates: start: 20110428

REACTIONS (2)
  - CROHN'S DISEASE [None]
  - ANAL ABSCESS [None]
